FAERS Safety Report 4330985-3 (Version None)
Quarter: 2004Q1

REPORT INFORMATION
  Report Type: 
  Country: None (occurrence: None)
  Receive Date: 20040329
  Receipt Date: 20040315
  Transmission Date: 20041129
  Serious: Yes (Hospitalization)
  Sender: FDA-Public Use
  Company Number: HQWYE836015MAR04

PATIENT
  Age: 79 Year
  Sex: Male

DRUGS (4)
  1. CORDARONE [Suspect]
     Indication: TACHYCARDIA
     Dosage: TABLET; ORAL
     Route: 048
  2. FUROSEMIDE [Concomitant]
  3. ACETYLSALICYLIC ACID SRT [Concomitant]
  4. LOSARTAN (LOSARTAN) [Concomitant]

REACTIONS (5)
  - BALANCE DISORDER [None]
  - CHEST PAIN [None]
  - DIPLOPIA [None]
  - HYPOTHYROIDISM [None]
  - WEIGHT DECREASED [None]
